FAERS Safety Report 19850039 (Version 1)
Quarter: 2021Q3

REPORT INFORMATION
  Report Type: Spontaneous
  Country: JP (occurrence: JP)
  Receive Date: 20210917
  Receipt Date: 20210917
  Transmission Date: 20211014
  Serious: Yes (Other)
  Sender: FDA-Public Use
  Company Number: JP-DSJP-DSJ-2021-130232

PATIENT
  Age: 67 Year
  Sex: Male

DRUGS (7)
  1. BISOPROLOL [BISOPROLOL FUMARATE] [Concomitant]
     Active Substance: BISOPROLOL FUMARATE
     Dosage: UNK
     Route: 048
  2. BISOPROLOL [BISOPROLOL FUMARATE] [Concomitant]
     Active Substance: BISOPROLOL FUMARATE
     Dosage: UNK
     Route: 048
  3. SEVOFLURANE. [Concomitant]
     Active Substance: SEVOFLURANE
  4. LANDIOLOL [Suspect]
     Active Substance: LANDIOLOL
     Dosage: 2.5 MG
     Route: 042
  5. REMIFENTANIL [REMIFENTANIL HYDROCHLORIDE] [Concomitant]
     Active Substance: REMIFENTANIL HYDROCHLORIDE
     Dosage: 0.3UG/KG/MIN
     Route: 065
  6. LIXIANA TABLETS [Suspect]
     Active Substance: EDOXABAN TOSYLATE
     Indication: ATRIAL FIBRILLATION
     Dosage: UNK
     Route: 048
  7. LANDIOLOL [Suspect]
     Active Substance: LANDIOLOL
     Indication: TACHYCARDIA
     Dosage: 2.5 MG
     Route: 042

REACTIONS (1)
  - Sinus arrest [Recovered/Resolved]
